FAERS Safety Report 9701386 (Version 2)
Quarter: 2013Q4

REPORT INFORMATION
  Report Type: Spontaneous
  Country: US (occurrence: US)
  Receive Date: 20131121
  Receipt Date: 20131121
  Transmission Date: 20140711
  Serious: No
  Sender: FDA-Public Use
  Company Number: US-GILEAD-2008-0016627

PATIENT
  Sex: Female
  Weight: 88 kg

DRUGS (13)
  1. LETAIRIS [Suspect]
     Indication: PULMONARY ARTERIAL HYPERTENSION
     Route: 048
     Dates: start: 20070828, end: 20080528
  2. LASIX [Concomitant]
     Route: 048
  3. LISINIPRIL [Concomitant]
     Route: 048
  4. GEMFIBRIZOL [Concomitant]
     Route: 048
  5. VYTORIN [Concomitant]
     Route: 048
  6. ASPIRIN [Concomitant]
     Route: 048
  7. HYDROCODONE/APAP [Concomitant]
     Route: 048
  8. GABAPENTIN [Concomitant]
     Route: 048
  9. HUMULIN R [Concomitant]
     Route: 058
  10. HUMULIN R [Concomitant]
  11. LEXAPRO [Concomitant]
     Route: 048
  12. AMITRIPTYLINE/PERPHENAZINE [Concomitant]
     Route: 048
  13. NEXIUM [Concomitant]
     Route: 048

REACTIONS (2)
  - Epistaxis [Unknown]
  - Nasal congestion [Unknown]
